FAERS Safety Report 7012276-5 (Version None)
Quarter: 2010Q3

REPORT INFORMATION
  Report Type: 
  Country: None (occurrence: None)
  Receive Date: 20100922
  Receipt Date: 20100922
  Transmission Date: 20110219
  Serious: Yes (Other)
  Sender: FDA-Public Use
  Company Number: None

PATIENT
  Age: 27 Year
  Sex: Female
  Weight: 54.4316 kg

DRUGS (1)
  1. TOPIRAMATE [Suspect]
     Indication: HEADACHE
     Dates: start: 20100817, end: 20100827

REACTIONS (1)
  - BLINDNESS [None]
